FAERS Safety Report 4857490-X (Version None)
Quarter: 2005Q4

REPORT INFORMATION
  Report Type: 
  Country: None (occurrence: None)
  Receive Date: 20051219
  Receipt Date: 20050310
  Transmission Date: 20060501
  Serious: No
  Sender: FDA-Public Use
  Company Number: US-GLAXOSMITHKLINE-A0549142A

PATIENT
  Age: 55 Year
  Sex: Female

DRUGS (3)
  1. TARGET NTS 21MG [Suspect]
     Dates: start: 20050301
  2. METRONIDAZOLE [Concomitant]
  3. SUDAFED 12 HOUR [Concomitant]

REACTIONS (3)
  - DRY THROAT [None]
  - EPISTAXIS [None]
  - NASAL DRYNESS [None]
